FAERS Safety Report 9350963 (Version 1)
Quarter: 2013Q2

REPORT INFORMATION
  Report Type: Spontaneous
  Country: US (occurrence: US)
  Receive Date: 20130617
  Receipt Date: 20130617
  Transmission Date: 20140414
  Serious: No
  Sender: FDA-Public Use
  Company Number: US-JNJFOC-20130601986

PATIENT
  Sex: Female
  Weight: 57.15 kg

DRUGS (12)
  1. FENTANYL TRANSDERMAL SYSTEM [Suspect]
     Indication: INTERVERTEBRAL DISC PROTRUSION
     Dosage: 0781-7242-55
     Route: 062
  2. LASIX [Concomitant]
     Indication: FLUID RETENTION
     Route: 048
     Dates: start: 201207
  3. VENTOLIN [Concomitant]
     Indication: ASTHMA
     Dosage: ONE PUFF
     Route: 055
  4. ADVAIR [Concomitant]
     Indication: ASTHMA
     Dosage: ONE PUFF
     Route: 055
  5. ASTELIN [Concomitant]
     Indication: ASTHMA
     Dosage: 2 SPRAYS
     Route: 045
     Dates: start: 2012
  6. LUVOX [Concomitant]
     Indication: OBSESSIVE-COMPULSIVE DISORDER
     Route: 048
     Dates: start: 1993
  7. TRAZODONE [Concomitant]
     Indication: POST-TRAUMATIC STRESS DISORDER
     Route: 048
     Dates: start: 1993
  8. TOPROL XL [Concomitant]
     Indication: HYPERTENSION
     Route: 048
  9. TOPROL XL [Concomitant]
     Indication: HEART RATE IRREGULAR
     Route: 048
  10. LISINOPRIL [Concomitant]
     Indication: HYPERTENSION
     Route: 048
  11. LISINOPRIL [Concomitant]
     Indication: HEART RATE IRREGULAR
     Route: 048
  12. PRILOSEC [Concomitant]
     Indication: PEPTIC ULCER
     Route: 065
     Dates: start: 1993

REACTIONS (2)
  - Poor quality drug administered [Not Recovered/Not Resolved]
  - Product quality issue [Unknown]
